FAERS Safety Report 7934538-7 (Version None)
Quarter: 2011Q4

REPORT INFORMATION
  Report Type: 
  Country: None (occurrence: None)
  Receive Date: 20111122
  Receipt Date: 20111118
  Transmission Date: 20120403
  Serious: Yes (Hospitalization)
  Sender: FDA-Public Use
  Company Number: NL-ABBOTT-11P-114-0856472-00

PATIENT
  Sex: Female
  Weight: 73 kg

DRUGS (11)
  1. HUMIRA [Suspect]
     Route: 058
     Dates: start: 20110404, end: 20110830
  2. TRIAMTERENE AND HYDROCHLOROTHIAZIDE [Suspect]
     Indication: HYPERTENSION
     Dosage: 50/25 MG
     Route: 048
     Dates: start: 20110819, end: 20111115
  3. TRIAMTERENE AND HYDROCHLOROTHIAZIDE [Suspect]
  4. HYDROCHLOROTHIAZIDE [Concomitant]
     Indication: HYPERTENSION
     Dosage: 1/1 TIME DAILY
     Route: 048
     Dates: start: 20080201, end: 20110818
  5. HUMIRA [Suspect]
     Dosage: ONE EVERY OTHER WEEK
     Route: 058
  6. OXAZEPAM [Concomitant]
     Indication: PRODUCT USED FOR UNKNOWN INDICATION
     Dosage: AS NECESSARY
     Dates: end: 20110928
  7. HUMIRA [Suspect]
     Indication: PSORIATIC ARTHROPATHY
     Route: 058
     Dates: start: 20090501, end: 20110301
  8. CYRESS [Concomitant]
     Indication: HYPERTENSION
     Route: 048
     Dates: start: 20110606, end: 20110818
  9. ACETAMINOPHEN [Concomitant]
     Indication: PRODUCT USED FOR UNKNOWN INDICATION
     Dosage: AS NECESSARY
  10. PANTOPRAZOLE SODIUM [Concomitant]
     Indication: PRODUCT USED FOR UNKNOWN INDICATION
     Dosage: AS NECESSARY
  11. TRIAMTERENE AND HYDROCHLOROTHIAZIDE [Suspect]
     Dates: start: 20111116, end: 20111118

REACTIONS (5)
  - DIZZINESS [None]
  - BLOOD POTASSIUM DECREASED [None]
  - FEELING ABNORMAL [None]
  - EXTRASYSTOLES [None]
  - FATIGUE [None]
